FAERS Safety Report 15613932 (Version 2)
Quarter: 2018Q4

REPORT INFORMATION
  Report Type: Report from Study
  Country: US (occurrence: US)
  Receive Date: 20181113
  Receipt Date: 20181116
  Transmission Date: 20190205
  Serious: Yes (Death, Hospitalization)
  Sender: FDA-Public Use
  Company Number: US-ACTELION-A-US2017-159731

PATIENT
  Age: 63 Year
  Sex: Female
  Weight: 45.35 kg

DRUGS (1)
  1. TRACLEER [Suspect]
     Active Substance: BOSENTAN
     Indication: PULMONARY ARTERIAL HYPERTENSION
     Dosage: 125 MG, BID
     Route: 048

REACTIONS (3)
  - Cardiac arrest [Fatal]
  - Staphylococcal infection [Unknown]
  - Localised infection [Unknown]

NARRATIVE: CASE EVENT DATE: 20181016
